FAERS Safety Report 18681283 (Version 1)
Quarter: 2020Q4

REPORT INFORMATION
  Report Type: Report from Study
  Country: US (occurrence: US)
  Receive Date: 20201230
  Receipt Date: 20201230
  Transmission Date: 20210114
  Serious: Yes (Other)
  Sender: FDA-Public Use
  Company Number: US-ROCHE-2736869

PATIENT
  Age: 61 Year
  Sex: Female
  Weight: 81.5 kg

DRUGS (4)
  1. OXALIPLATIN. [Suspect]
     Active Substance: OXALIPLATIN
     Indication: DIFFUSE LARGE B-CELL LYMPHOMA
     Dosage: C2D1:01/OCT/2020, C3D1: 29/OCT/2020?DATE OF MOST RECENT DOSE PRIOR TO SAE: 12/NOV/2020 390 MG (DOSE
     Route: 042
     Dates: start: 20200917
  2. ATEZOLIZUMAB. [Suspect]
     Active Substance: ATEZOLIZUMAB
     Indication: DIFFUSE LARGE B-CELL LYMPHOMA
     Dosage: C2D1:01/OCT/2020, C3D1: 29/OCT/2020?DATE OF MOST RECENT DOSE PRIOR TO SAE: 12/NOV/2020?TOTAL ADMINIS
     Route: 042
     Dates: start: 20200917
  3. GEMCITABINE HYDROCHLORIDE. [Suspect]
     Active Substance: GEMCITABINE HYDROCHLORIDE
     Indication: DIFFUSE LARGE B-CELL LYMPHOMA
     Dosage: C2D1:01/OCT/2020, C3D1: 29/OCT/2020?DATE OF MOST RECENT DOSE PRIOR TO SAE: 12/NOV/2020 3952 MG (DOSE
     Route: 042
     Dates: start: 20200917
  4. RITUXIMAB. [Suspect]
     Active Substance: RITUXIMAB
     Indication: DIFFUSE LARGE B-CELL LYMPHOMA
     Dosage: C2D1:01/OCT/2020, C3D1: 29/OCT/2020?DATE OF MOST RECENT DOSE PRIOR TO SAE: 12/NOV/2020 1400 MG?(DOSE
     Route: 042
     Dates: start: 20200917

REACTIONS (1)
  - Platelet count decreased [Recovered/Resolved]

NARRATIVE: CASE EVENT DATE: 20201123
